FAERS Safety Report 16771306 (Version 3)
Quarter: 2019Q4

REPORT INFORMATION
  Report Type: Spontaneous
  Country: US (occurrence: US)
  Receive Date: 20190904
  Receipt Date: 20191108
  Transmission Date: 20200122
  Serious: Yes (Hospitalization)
  Sender: FDA-Public Use
  Company Number: US-VERTEX PHARMACEUTICALS-2019-008371

PATIENT
  Age: 24 Year
  Sex: Male

DRUGS (10)
  1. PRILOSEC [Concomitant]
     Active Substance: OMEPRAZOLE MAGNESIUM
  2. LEVEMIR [Concomitant]
     Active Substance: INSULIN DETEMIR
  3. NOVOLOG [Concomitant]
     Active Substance: INSULIN ASPART
  4. SYMDEKO [Suspect]
     Active Substance: IVACAFTOR\TEZACAFTOR
     Indication: CYSTIC FIBROSIS
     Dosage: 100MG TEZACAFTOR/150MG IVACAFTOR AM; 150MG IVACAFTOR PM
     Route: 048
     Dates: start: 20190810
  5. URSODIOL. [Concomitant]
     Active Substance: URSODIOL
  6. ZYPREXA [Concomitant]
     Active Substance: OLANZAPINE
  7. MELATONIN [Concomitant]
     Active Substance: MELATONIN
  8. ALBUTEROL SULFATE. [Concomitant]
     Active Substance: ALBUTEROL SULFATE
  9. BREO ELLIPTA [Concomitant]
     Active Substance: FLUTICASONE FUROATE\VILANTEROL TRIFENATATE
  10. PULMOZYME [Concomitant]
     Active Substance: DORNASE ALFA

REACTIONS (2)
  - Device related infection [Recovering/Resolving]
  - Infective pulmonary exacerbation of cystic fibrosis [Unknown]

NARRATIVE: CASE EVENT DATE: 2019
